FAERS Safety Report 22747892 (Version 2)
Quarter: 2024Q4

REPORT INFORMATION
  Report Type: Spontaneous
  Country: US (occurrence: US)
  Receive Date: 20230725
  Receipt Date: 20241118
  Transmission Date: 20250114
  Serious: Yes (Hospitalization, Other)
  Sender: AUROBINDO
  Company Number: US-AUROBINDO-AUR-APL-2023-049606

PATIENT
  Age: 66 Year
  Sex: Female

DRUGS (3)
  1. MELPHALAN [Suspect]
     Active Substance: MELPHALAN
     Indication: Stem cell transplant
     Dosage: 200 MILLIGRAM/SQ. METER
     Route: 065
  2. MELPHALAN [Suspect]
     Active Substance: MELPHALAN
     Indication: Chemotherapy
  3. LENALIDOMIDE [Concomitant]
     Active Substance: LENALIDOMIDE
     Indication: Stem cell transplant
     Dosage: UNK
     Route: 065

REACTIONS (2)
  - Graft versus host disease [Recovering/Resolving]
  - Engraftment syndrome [Recovering/Resolving]
